FAERS Safety Report 5897447-3 (Version None)
Quarter: 2008Q3

REPORT INFORMATION
  Report Type: 
  Country: None (occurrence: None)
  Receive Date: 20080917
  Receipt Date: 20070814
  Transmission Date: 20090109
  Serious: Yes (Other)
  Sender: FDA-Public Use
  Company Number: PHEH2007US09654

PATIENT
  Age: 69 Year
  Sex: Female

DRUGS (1)
  1. FEMARA [Suspect]
     Indication: GASTRIC CANCER

REACTIONS (6)
  - BONE PAIN [None]
  - DRUG INEFFECTIVE [None]
  - DRUG INTOLERANCE [None]
  - EARLY SATIETY [None]
  - TUMOUR MARKER INCREASED [None]
  - WEIGHT DECREASED [None]
